FAERS Safety Report 10233339 (Version 3)
Quarter: 2014Q2

REPORT INFORMATION
  Report Type: Spontaneous
  Country: BR (occurrence: BR)
  Receive Date: 20140612
  Receipt Date: 20140618
  Transmission Date: 20141212
  Serious: Yes (Death, Hospitalization, Other)
  Sender: FDA-Public Use
  Company Number: BR-PFIZER INC-2014140801

PATIENT
  Sex: Male

DRUGS (1)
  1. SUTENT [Suspect]
     Indication: RENAL CELL CARCINOMA
     Dosage: 1 CAPSULE (50 MG), 1X/DAY, CYCLIC (4 PER 2)
     Route: 048
     Dates: start: 20140513, end: 20140606

REACTIONS (12)
  - Death [Fatal]
  - Apnoea [Unknown]
  - Haemoglobin decreased [Unknown]
  - Vomiting [Unknown]
  - Anaemia [Unknown]
  - Feeling hot [Unknown]
  - Asthenia [Not Recovered/Not Resolved]
  - Feeding disorder [Not Recovered/Not Resolved]
  - Cough [Unknown]
  - Urinary tract infection [Unknown]
  - Dyspnoea [Unknown]
  - Diarrhoea [Unknown]
